FAERS Safety Report 15215144 (Version 1)
Quarter: 2018Q3

REPORT INFORMATION
  Report Type: Spontaneous
  Country: HR (occurrence: HR)
  Receive Date: 20180730
  Receipt Date: 20180730
  Transmission Date: 20181010
  Serious: Yes (Hospitalization, Other)
  Sender: FDA-Public Use
  Company Number: HR-SA-2018SA102016

PATIENT

DRUGS (4)
  1. CALCIUM CARBONATE. [Suspect]
     Active Substance: CALCIUM CARBONATE
     Indication: PRODUCT USED FOR UNKNOWN INDICATION
     Dosage: 500 MG,UNK
     Route: 048
  2. ESTRAMUSTINE [Suspect]
     Active Substance: ESTRAMUSTINE
     Indication: PRODUCT USED FOR UNKNOWN INDICATION
     Dosage: 140 OT, UNK (1X1),QD
     Route: 065
  3. ETOPOSIDE. [Suspect]
     Active Substance: ETOPOSIDE
     Indication: PRODUCT USED FOR UNKNOWN INDICATION
     Dosage: 100 MG,Q3W
     Route: 065
  4. ERGOCALCIFEROL. [Suspect]
     Active Substance: ERGOCALCIFEROL
     Indication: PRODUCT USED FOR UNKNOWN INDICATION
     Dosage: 400 DF,UNK
     Route: 065

REACTIONS (9)
  - Haemorrhagic anaemia [Unknown]
  - Pancytopenia [Unknown]
  - Gastrointestinal haemorrhage [Unknown]
  - Haemorrhoids [Unknown]
  - Anal fissure [Unknown]
  - Bone marrow tumour cell infiltration [Unknown]
  - Laceration [Unknown]
  - Constipation [Unknown]
  - Platelet count decreased [Unknown]
